FAERS Safety Report 17376923 (Version 1)
Quarter: 2020Q1

REPORT INFORMATION
  Report Type: Spontaneous
  Country: GB (occurrence: GB)
  Receive Date: 20200206
  Receipt Date: 20200206
  Transmission Date: 20200409
  Serious: Yes (Life-Threatening, Hospitalization)
  Sender: FDA-Public Use
  Company Number: GB-MYLANLABS-2020M1012997

PATIENT
  Age: 75 Year
  Sex: Female
  Weight: 75 kg

DRUGS (10)
  1. RANITIDINE. [Concomitant]
     Active Substance: RANITIDINE
     Indication: GASTRIC PH DECREASED
     Dosage: 2 DOSAGE FORM, QD
     Dates: start: 20190808, end: 20191021
  2. CALCIUM ACETATE. [Concomitant]
     Active Substance: CALCIUM ACETATE
     Indication: MINERAL SUPPLEMENTATION
     Dosage: 3 DOSAGE FORM, QD
     Dates: start: 20190808
  3. RAMIPRIL. [Concomitant]
     Active Substance: RAMIPRIL
     Indication: HYPERTENSION
     Dosage: 1 DOSAGE FORM, QD (TAKE EVERY MORNING)
     Dates: start: 20191121
  4. ARANESP [Concomitant]
     Active Substance: DARBEPOETIN ALFA
     Indication: HAEMOGLOBIN DECREASED
     Dosage: 1 DOSAGE FORM, BIWEEKLY (SYRINGE)
     Dates: start: 20171127
  5. LANSOPRAZOLE. [Suspect]
     Active Substance: LANSOPRAZOLE
     Indication: PROPHYLAXIS
     Dosage: 15 MILLIGRAM, QD
     Route: 048
     Dates: start: 20191021, end: 20191030
  6. FUROSEMIDE. [Concomitant]
     Active Substance: FUROSEMIDE
     Indication: DIURETIC THERAPY
     Dosage: 1 DOSAGE FORM, QD (TAKE EACH MORNING)
     Dates: start: 20190808
  7. DOCUSATE SODIUM. [Concomitant]
     Active Substance: DOCUSATE SODIUM
     Indication: CONSTIPATION
     Dosage: 4 DOSAGE FORM, QD
     Dates: start: 20190808
  8. AMLODIPINE [Concomitant]
     Active Substance: AMLODIPINE BESYLATE
     Indication: HYPERTENSION
     Dosage: 1 DOSAGE FORM, QD (TAKE EVERY MORNING)
     Dates: start: 20190808
  9. PREDNISOLONE. [Concomitant]
     Active Substance: PREDNISOLONE
     Dosage: AND REDUCE DOSE AS INSTRUCTED
     Dates: start: 20190808
  10. SIMVASTATIN. [Concomitant]
     Active Substance: SIMVASTATIN
     Indication: BLOOD CHOLESTEROL INCREASED
     Dosage: 1 DOSAGE FORM, QD (NIGHT)
     Dates: start: 20190808

REACTIONS (3)
  - Pemphigoid [Recovering/Resolving]
  - Rash vesicular [Unknown]
  - Erythema [Unknown]

NARRATIVE: CASE EVENT DATE: 20191030
